FAERS Safety Report 6295479-7 (Version None)
Quarter: 2009Q3

REPORT INFORMATION
  Report Type: 
  Country: None (occurrence: None)
  Receive Date: 20090803
  Receipt Date: 20090723
  Transmission Date: 20100115
  Serious: Yes (Hospitalization)
  Sender: FDA-Public Use
  Company Number: DE-GENENTECH-287772

PATIENT
  Sex: Male

DRUGS (4)
  1. AVASTIN [Suspect]
     Indication: RECTAL CANCER
     Dosage: 7.5 MG/KG, UNK
     Route: 042
     Dates: start: 20090309, end: 20090623
  2. CAPECITABINE [Concomitant]
     Indication: RECTAL CANCER
     Dosage: UNK
     Dates: start: 20090309, end: 20090705
  3. IRINOTECAN HCL [Concomitant]
     Indication: RECTAL CANCER
     Dosage: UNK
     Dates: start: 20090309, end: 20090330
  4. BISOPROLOL [Concomitant]
     Indication: HYPERTENSION
     Dosage: UNK

REACTIONS (1)
  - PLEURISY [None]
